FAERS Safety Report 4981765-7 (Version None)
Quarter: 2006Q2

REPORT INFORMATION
  Report Type: 
  Country: None (occurrence: None)
  Receive Date: 20060420
  Receipt Date: 20060420
  Transmission Date: 20061013
  Serious: Yes (Life-Threatening, Hospitalization)
  Sender: FDA-Public Use
  Company Number: None

PATIENT
  Sex: Female
  Weight: 65 kg

DRUGS (8)
  1. ONCASPAR [Suspect]
     Indication: ACUTE LYMPHOCYTIC LEUKAEMIA
     Dosage: 4000 UNITS   ONCE   IM
     Route: 030
     Dates: start: 20060203
  2. ONCASPAR [Suspect]
     Indication: ACUTE LYMPHOCYTIC LEUKAEMIA
     Dosage: 4000 UNITS   ONCE   IM
     Route: 030
     Dates: start: 20060321
  3. ONCASPAR [Suspect]
     Indication: ACUTE LYMPHOCYTIC LEUKAEMIA
     Dosage: 4000 UNITS   ONCE   IM
     Route: 030
     Dates: start: 20060418
  4. CYCLOPHOSPHAMIDE [Concomitant]
  5. CYTARABINE [Concomitant]
  6. MERCAPTOPURINE [Concomitant]
  7. PENTAMIDINE ISETHIONATE [Concomitant]
  8. ONDANSETRON [Concomitant]

REACTIONS (3)
  - CARDIAC ARREST [None]
  - PARAESTHESIA [None]
  - RESPIRATORY DISTRESS [None]
